FAERS Safety Report 6983029-9 (Version None)
Quarter: 2010Q3

REPORT INFORMATION
  Report Type: 
  Country: None (occurrence: None)
  Receive Date: 20100914
  Receipt Date: 20100527
  Transmission Date: 20110219
  Serious: No
  Sender: FDA-Public Use
  Company Number: US-PFIZER INC-2010062752

PATIENT
  Sex: Male
  Weight: 78.458 kg

DRUGS (2)
  1. LYRICA [Suspect]
     Indication: FIBROMYALGIA
     Dosage: 50 MG, DAILY
     Route: 048
     Dates: start: 20100501
  2. XANAX [Concomitant]
     Dosage: QUARTER TABLET TAKEN AT NIGHT
     Route: 048

REACTIONS (7)
  - DRUG INEFFECTIVE [None]
  - HUNGER [None]
  - INSOMNIA [None]
  - IRRITABILITY [None]
  - RESPIRATORY RATE INCREASED [None]
  - SOMNOLENCE [None]
  - WEIGHT INCREASED [None]
